FAERS Safety Report 6940779-8 (Version None)
Quarter: 2010Q3

REPORT INFORMATION
  Report Type: 
  Country: None (occurrence: None)
  Receive Date: 20100825
  Receipt Date: 20100816
  Transmission Date: 20110219
  Serious: Yes (Hospitalization)
  Sender: FDA-Public Use
  Company Number: CA-JNJFOC-20100805791

PATIENT
  Sex: Female
  Weight: 77 kg

DRUGS (4)
  1. REMICADE [Suspect]
     Indication: PSORIATIC ARTHROPATHY
     Route: 042
  2. NAPROXEN [Concomitant]
  3. ANTIBIOTIC [Concomitant]
  4. ANALGESIC [Concomitant]
     Indication: PAIN

REACTIONS (1)
  - SHOULDER ARTHROPLASTY [None]
